FAERS Safety Report 8470422-0 (Version None)
Quarter: 2012Q2

REPORT INFORMATION
  Report Type: 
  Country: None (occurrence: None)
  Receive Date: 20120627
  Receipt Date: 20120613
  Transmission Date: 20120825
  Serious: Yes (Hospitalization)
  Sender: FDA-Public Use
  Company Number: US-MYLANLABS-2012S1012224

PATIENT
  Age: 50 Year
  Sex: Female

DRUGS (6)
  1. GABAPENTIN [Suspect]
     Route: 065
  2. GABAPENTIN [Suspect]
     Route: 065
  3. GABAPENTIN [Suspect]
     Indication: OVERDOSE
     Dosage: UP TO 80 X 300MG CAPSULES (APPROXIMATELY 24 000MG)
     Route: 048
  4. GABAPENTIN [Suspect]
     Dosage: 25 X 300MG CAPSULES (7500MG)
     Route: 048
  5. GABAPENTIN [Suspect]
     Indication: DRUG ABUSE
     Dosage: UP TO 80 X 300MG CAPSULES (APPROXIMATELY 24 000MG)
     Route: 048
  6. GABAPENTIN [Suspect]
     Dosage: 25 X 300MG CAPSULES (7500MG)
     Route: 048

REACTIONS (8)
  - DEPRESSED LEVEL OF CONSCIOUSNESS [None]
  - RESPIRATORY DEPRESSION [None]
  - DRUG ABUSE [None]
  - OVERDOSE [None]
  - DYSKINESIA [None]
  - POSTERIOR REVERSIBLE ENCEPHALOPATHY SYNDROME [None]
  - STATUS EPILEPTICUS [None]
  - HYPERTENSION [None]
